FAERS Safety Report 20391769 (Version 1)
Quarter: 2022Q1

REPORT INFORMATION
  Report Type: Spontaneous
  Country: US (occurrence: None)
  Receive Date: 20220128
  Receipt Date: 20220128
  Transmission Date: 20220423
  Serious: Yes (Disabling)
  Sender: FDA-Public Use
  Company Number: None

PATIENT
  Age: 47 Year
  Sex: Female

DRUGS (1)
  1. SUBOXONE [Suspect]
     Active Substance: BUPRENORPHINE HYDROCHLORIDE\NALOXONE HYDROCHLORIDE
     Indication: Drug use disorder
     Dosage: OTHER FREQUENCY : 8 MG AM 12 MG PM;?
     Route: 060
     Dates: start: 20110101

REACTIONS (6)
  - Dental caries [None]
  - Tooth infection [None]
  - Tooth loss [None]
  - Mastication disorder [None]
  - Tooth extraction [None]
  - Self esteem decreased [None]

NARRATIVE: CASE EVENT DATE: 20220126
